FAERS Safety Report 16626045 (Version 2)
Quarter: 2019Q4

REPORT INFORMATION
  Report Type: Spontaneous
  Country: US (occurrence: US)
  Receive Date: 20190724
  Receipt Date: 20191121
  Transmission Date: 20200122
  Serious: Yes (Other)
  Sender: FDA-Public Use
  Company Number: US-ASTRAZENECA-2019SE11272

PATIENT
  Age: 53 Year
  Sex: Female

DRUGS (45)
  1. PRILOSEC [Suspect]
     Active Substance: OMEPRAZOLE MAGNESIUM
     Indication: DYSPEPSIA
     Dosage: FOR VARIOUS DATES AND YEARS PRIOR TO AND/OR INCLUDING THE DATE(S) OF PLAINTIFF^S INJURY OR INJURIES.
     Route: 048
  2. NEXIUM 24HR [Suspect]
     Active Substance: ESOMEPRAZOLE MAGNESIUM
     Indication: DYSPEPSIA
     Route: 048
     Dates: start: 2000, end: 2017
  3. PROTONIX [Suspect]
     Active Substance: PANTOPRAZOLE SODIUM
     Route: 042
     Dates: start: 20130726
  4. PEPCID AC [Concomitant]
     Active Substance: FAMOTIDINE
  5. ZANTAC [Concomitant]
     Active Substance: RANITIDINE HYDROCHLORIDE
  6. FLUCONAZOLE. [Concomitant]
     Active Substance: FLUCONAZOLE
     Indication: INFECTION
  7. SUCRALFATE. [Concomitant]
     Active Substance: SUCRALFATE
     Indication: ULCER
  8. DICYCLOMINE [Concomitant]
     Active Substance: DICYCLOMINE HYDROCHLORIDE
     Indication: INFLAMMATORY BOWEL DISEASE
  9. CLOTRIM/BETA [Concomitant]
     Indication: SKIN INFECTION
  10. PRILOSEC [Suspect]
     Active Substance: OMEPRAZOLE MAGNESIUM
     Indication: DYSPEPSIA
     Route: 048
     Dates: start: 20130717
  11. NEXIUM [Suspect]
     Active Substance: ESOMEPRAZOLE MAGNESIUM
     Indication: DYSPEPSIA
     Route: 048
     Dates: start: 2000, end: 2017
  12. PREVACID 24 HR [Suspect]
     Active Substance: LANSOPRAZOLE
     Dosage: FOR VARIOUS DATES AND YEARS PRIOR TO AND/OR INCLUDING THE DATE(S) OF PLAINTIFF^S INJURY OR INJURIES.
     Route: 065
  13. LISINOPRIL. [Concomitant]
     Active Substance: LISINOPRIL
  14. ROSUVASTATIN. [Concomitant]
     Active Substance: ROSUVASTATIN
     Indication: BLOOD CHOLESTEROL INCREASED
  15. NYSTAT [Concomitant]
     Active Substance: NYSTATIN
     Indication: INFECTION
  16. CALCITROL [Concomitant]
     Indication: VITAMIN D DEFICIENCY
  17. TYLENOL [Concomitant]
     Active Substance: ACETAMINOPHEN
     Indication: PAIN
  18. METOPROLOL TARTRATE. [Concomitant]
     Active Substance: METOPROLOL TARTRATE
  19. CLARITHROMYCIN. [Concomitant]
     Active Substance: CLARITHROMYCIN
  20. CIPROFLOXACIN. [Concomitant]
     Active Substance: CIPROFLOXACIN
     Indication: INFECTION
  21. CLARITHROMYCIN. [Concomitant]
     Active Substance: CLARITHROMYCIN
     Indication: INFECTION
  22. ASPIRIN. [Concomitant]
     Active Substance: ASPIRIN
     Indication: HEADACHE
  23. PRILOSEC [Suspect]
     Active Substance: OMEPRAZOLE MAGNESIUM
     Indication: DYSPEPSIA
     Route: 048
     Dates: start: 2000, end: 2017
  24. CELECOXIB. [Concomitant]
     Active Substance: CELECOXIB
  25. INDOMETHACIN. [Concomitant]
     Active Substance: INDOMETHACIN
     Indication: PAIN
  26. GABAPENTIN. [Concomitant]
     Active Substance: GABAPENTIN
  27. PROMETHAZINE [Concomitant]
     Active Substance: PROMETHAZINE HYDROCHLORIDE
  28. CYCLOBENZAPRINE. [Concomitant]
     Active Substance: CYCLOBENZAPRINE
  29. CLINDAMYCIN. [Concomitant]
     Active Substance: CLINDAMYCIN
  30. VANCOMYCIN [Concomitant]
     Active Substance: VANCOMYCIN
  31. ERYTHROMYCIN. [Concomitant]
     Active Substance: ERYTHROMYCIN
  32. PRILOSEC [Suspect]
     Active Substance: OMEPRAZOLE MAGNESIUM
     Indication: DYSPEPSIA
     Route: 048
     Dates: start: 20130813
  33. PRILOSEC OTC [Suspect]
     Active Substance: OMEPRAZOLE MAGNESIUM
     Indication: DYSPEPSIA
     Route: 048
     Dates: start: 2000, end: 2017
  34. AMOXICILLIN. [Concomitant]
     Active Substance: AMOXICILLIN
     Indication: INFECTION
  35. HYDROCODONE BITARTRATE AND ACETAMINOPHEN [Concomitant]
     Active Substance: ACETAMINOPHEN\HYDROCODONE BITARTRATE
     Indication: PAIN
  36. CEPHALEXIN. [Concomitant]
     Active Substance: CEPHALEXIN
  37. OXYCODONE/ACETAMINOPHEN [Concomitant]
     Active Substance: ACETAMINOPHEN\OXYCODONE HYDROCHLORIDE
  38. ONDANSETRON [Concomitant]
     Active Substance: ONDANSETRON
  39. AMLODIPINE [Concomitant]
     Active Substance: AMLODIPINE BESYLATE
     Indication: HYPERTENSION
  40. VITAMIN D2 [Concomitant]
     Active Substance: ERGOCALCIFEROL
     Indication: VITAMIN D DEFICIENCY
  41. MELOXICAM. [Concomitant]
     Active Substance: MELOXICAM
     Indication: ANTIINFLAMMATORY THERAPY
  42. METRONIDAZOLE. [Concomitant]
     Active Substance: METRONIDAZOLE
     Indication: INFECTION
  43. PRILOSEC OTC [Suspect]
     Active Substance: OMEPRAZOLE MAGNESIUM
     Indication: DYSPEPSIA
     Dosage: FOR VARIOUS DATES AND YEARS PRIOR TO AND/OR INCLUDING THE DATE(S) OF PLAINTIFF^S INJURY OR INJURIES.
     Route: 048
  44. PARICALCITOL. [Concomitant]
     Active Substance: PARICALCITOL
     Indication: ACQUIRED CYSTIC KIDNEY DISEASE
  45. BENADRYL [Concomitant]
     Active Substance: DIPHENHYDRAMINE HYDROCHLORIDE
     Indication: PRURITUS

REACTIONS (5)
  - Renal injury [Unknown]
  - Hyperparathyroidism secondary [Unknown]
  - Rebound acid hypersecretion [Unknown]
  - Chronic kidney disease [Not Recovered/Not Resolved]
  - Renal failure [Unknown]

NARRATIVE: CASE EVENT DATE: 2002
